FAERS Safety Report 5396177-4 (Version None)
Quarter: 2007Q3

REPORT INFORMATION
  Report Type: 
  Country: None (occurrence: None)
  Receive Date: 20070718
  Receipt Date: 20070221
  Transmission Date: 20080115
  Serious: Yes (Hospitalization, Other)
  Sender: FDA-Public Use
  Company Number: 2006139287

PATIENT
  Age: 48 Year
  Sex: Female
  Weight: 85.7 kg

DRUGS (1)
  1. CELEBREX [Suspect]
     Indication: NECK PAIN
     Dosage: 200 MG (100 MG,2 IN 1 D),ORAL
     Route: 048
     Dates: start: 19991217, end: 20001008

REACTIONS (1)
  - CEREBROVASCULAR ACCIDENT [None]
